FAERS Safety Report 5136473-9 (Version None)
Quarter: 2006Q4

REPORT INFORMATION
  Report Type: 
  Country: None (occurrence: None)
  Receive Date: 20061027
  Receipt Date: 20061018
  Transmission Date: 20070319
  Serious: Yes (Hospitalization)
  Sender: FDA-Public Use
  Company Number: US-ABBOTT-06P-163-0347309-00

PATIENT
  Age: 4 Year
  Sex: Female
  Weight: 16.798 kg

DRUGS (2)
  1. OMNICEF [Suspect]
     Indication: OTITIS MEDIA ACUTE
     Route: 048
     Dates: start: 20061010, end: 20061011
  2. OMNICEF [Suspect]
     Dosage: ORDERED: 1/2 TSP TWICE DAILY
     Route: 048
     Dates: start: 20061010, end: 20061011

REACTIONS (2)
  - DYSPNOEA [None]
  - OVERDOSE [None]
